FAERS Safety Report 8982457 (Version 1)
Quarter: 2012Q4

REPORT INFORMATION
  Report Type: 
  Country: JP (occurrence: JP)
  Receive Date: 20121222
  Receipt Date: 20121222
  Transmission Date: 20130627
  Serious: Yes (Death)
  Sender: FDA-Public Use
  Company Number: JP-NAPPMUNDI-GBR-2012-0012476

PATIENT
  Age: 59 Year
  Sex: Male

DRUGS (22)
  1. BUPRENORPHINE TRANSDERMAL SYSTEM [Suspect]
     Indication: SPINAL OSTEOARTHRITIS
     Dosage: 20 mcg, q1h
     Route: 062
     Dates: start: 20120109, end: 20120925
  2. BUPRENORPHINE TRANSDERMAL SYSTEM [Suspect]
     Dosage: 15 mcg, q1h
     Route: 062
     Dates: start: 20111219, end: 20120108
  3. BUPRENORPHINE TRANSDERMAL SYSTEM [Suspect]
     Dosage: 10 mcg, q1h
     Route: 062
     Dates: start: 20111212, end: 20111218
  4. BUPRENORPHINE TRANSDERMAL SYSTEM [Suspect]
     Dosage: 5 mcg, q1h
     Route: 062
     Dates: start: 20111202, end: 20111211
  5. PHOSBLOCK [Concomitant]
     Dosage: 250 mg, UNK
     Route: 048
  6. FOSRENOL [Concomitant]
     Dosage: 250 mg, UNK
  7. MUCOSTA [Concomitant]
     Dosage: 100 mg, UNK
  8. LEVOCARNITINE [Concomitant]
     Dosage: 300 mg, UNK
     Route: 048
  9. PROMAC                             /00024401/ [Concomitant]
  10. NU-LOTAN [Concomitant]
     Dosage: 100 mg, UNK
     Route: 048
  11. ACINON [Concomitant]
     Dosage: 75 mg, UNK
     Route: 048
  12. REGPARA [Concomitant]
     Dosage: 25 mg, UNK
     Route: 048
  13. MEXITIL [Concomitant]
     Dosage: 100 mg, UNK
  14. LYRICA [Concomitant]
     Dosage: 25 mg, UNK
     Route: 048
  15. FERROMIA /00023516/ [Concomitant]
     Dosage: 50 mg, UNK
  16. RIVOTRIL [Concomitant]
     Dosage: 0.5 mg, UNK
     Route: 048
  17. SERTRALINE                         /01011402/ [Concomitant]
     Dosage: 25 mg, UNK
     Route: 048
  18. FOSAMAX [Concomitant]
     Dosage: 35 mg, UNK
     Route: 048
  19. CALONAL [Concomitant]
     Dosage: 200 mg, UNK
     Dates: start: 20111202
  20. POSTERISAN                         /05730901/ [Concomitant]
     Dosage: UNK
     Route: 061
     Dates: start: 20111202
  21. PURSENNID /00142207/ [Concomitant]
     Dosage: 12 mg, UNK
     Route: 048
     Dates: start: 20111202
  22. LULICONAZOLE [Concomitant]
     Dosage: 1 UNK, UNK
     Route: 061
     Dates: start: 20111202

REACTIONS (1)
  - Acute myocardial infarction [Fatal]
